FAERS Safety Report 4274583-9 (Version None)
Quarter: 2004Q1

REPORT INFORMATION
  Report Type: 
  Country: None (occurrence: None)
  Receive Date: 20040115
  Receipt Date: 20040108
  Transmission Date: 20041129
  Serious: Yes (Death, Hospitalization)
  Sender: FDA-Public Use
  Company Number: 2004001369

PATIENT
  Age: 74 Year
  Sex: Female

DRUGS (3)
  1. DIFLUCAN [Suspect]
     Indication: ORAL CANDIDIASIS
     Dosage: (ONCE), ORAL
     Route: 048
     Dates: start: 20030708, end: 20030708
  2. ANTIBIOTICS [Concomitant]
  3. ANTINEOPLASTIC AGENTS [Concomitant]

REACTIONS (1)
  - BREAST CANCER [None]
